FAERS Safety Report 8032914-8 (Version None)
Quarter: 2011Q4

REPORT INFORMATION
  Report Type: 
  Country: None (occurrence: None)
  Receive Date: 20111223
  Receipt Date: 20111215
  Transmission Date: 20120403
  Serious: Yes (Other)
  Sender: FDA-Public Use
  Company Number: A0958402A

PATIENT
  Age: 19 Year
  Sex: Male

DRUGS (1)
  1. UREA PEROXIDE [Suspect]
     Dosage: AURAL

REACTIONS (1)
  - DEAFNESS UNILATERAL [None]
